FAERS Safety Report 9554010 (Version 1)
Quarter: 2013Q3

REPORT INFORMATION
  Report Type: Spontaneous
  Country: US (occurrence: US)
  Receive Date: 20130925
  Receipt Date: 20130925
  Transmission Date: 20140515
  Serious: Yes (Other)
  Sender: FDA-Public Use
  Company Number: US-GLAXOSMITHKLINE-A1042747A

PATIENT
  Age: 60 Year
  Sex: Male

DRUGS (1)
  1. LAMICTAL XR [Suspect]
     Indication: CONVULSION
     Dosage: 200MG UNKNOWN
     Dates: start: 20050101

REACTIONS (1)
  - Cerebrovascular accident [Unknown]
